FAERS Safety Report 16974098 (Version 1)
Quarter: 2019Q4

REPORT INFORMATION
  Report Type: Spontaneous
  Country: CH (occurrence: CH)
  Receive Date: 20191030
  Receipt Date: 20191030
  Transmission Date: 20200122
  Serious: Yes (Other)
  Sender: FDA-Public Use
  Company Number: CH-AMERICAN REGENT INC-2019002323

PATIENT
  Age: 50 Year
  Sex: Female

DRUGS (1)
  1. FERINJECT [Suspect]
     Active Substance: FERRIC CARBOXYMALTOSE
     Indication: PRODUCT USED FOR UNKNOWN INDICATION
     Dosage: 500 MILLIGRAM, 1TOTAL
     Dates: start: 20191010, end: 20191010

REACTIONS (5)
  - Infusion site extravasation [Unknown]
  - Infusion site discolouration [Unknown]
  - Infusion site pain [Unknown]
  - Infusion site oedema [Unknown]
  - Thrombosis [Unknown]

NARRATIVE: CASE EVENT DATE: 20191010
